FAERS Safety Report 7887820 (Version 3)
Quarter: 2014Q2

REPORT INFORMATION
  Report Type: Spontaneous
  Country: US (occurrence: US)
  Receive Date: 20110406
  Receipt Date: 20140509
  Transmission Date: 20141212
  Serious: Yes (Hospitalization, Other)
  Sender: FDA-Public Use
  Company Number: US-BAYER-2011-028380

PATIENT
  Age: 42 Year
  Sex: Female
  Weight: 77.1 kg

DRUGS (4)
  1. YASMIN [Suspect]
     Dosage: UNK
     Dates: start: 2002, end: 200608
  2. YAZ [Suspect]
     Dosage: UNK
     Dates: start: 2002, end: 2006
  3. PROZAC [Concomitant]
  4. FLUOXETINE [Concomitant]

REACTIONS (3)
  - Pulmonary embolism [None]
  - Thrombosis [None]
  - Deep vein thrombosis [None]
